FAERS Safety Report 17744442 (Version 2)
Quarter: 2020Q2

REPORT INFORMATION
  Report Type: Spontaneous
  Country: US (occurrence: US)
  Receive Date: 20200505
  Receipt Date: 20200515
  Transmission Date: 20200714
  Serious: Yes (Hospitalization, Other)
  Sender: FDA-Public Use
  Company Number: US-PFIZER INC-2020176320

PATIENT
  Age: 69 Year
  Sex: Female
  Weight: 89.81 kg

DRUGS (1)
  1. GENOTROPIN MQ [Suspect]
     Active Substance: SOMATROPIN
     Indication: GROWTH HORMONE DEFICIENCY
     Dosage: 0.2 MG, 1X/DAY (0.2MG ONCE A DAY BY INJECTION)
     Dates: start: 2009, end: 202004

REACTIONS (2)
  - Pathological fracture [Unknown]
  - Treatment noncompliance [Unknown]
